FAERS Safety Report 5099915-3 (Version None)
Quarter: 2006Q3

REPORT INFORMATION
  Report Type: 
  Country: None (occurrence: None)
  Receive Date: 20060908
  Receipt Date: 20060817
  Transmission Date: 20061208
  Serious: Yes (Hospitalization)
  Sender: FDA-Public Use
  Company Number: ESWYE728217AUG06

PATIENT
  Sex: Male

DRUGS (3)
  1. ENBREL [Suspect]
     Indication: ANKYLOSING SPONDYLITIS
     Route: 058
     Dates: start: 20040415, end: 20060602
  2. INACID [Concomitant]
     Dosage: UNKNOWN
     Route: 048
     Dates: start: 20040415, end: 20060201
  3. ARCOXIA [Concomitant]
     Route: 048
     Dates: start: 20060201, end: 20060602

REACTIONS (1)
  - EOSINOPHILIC CYSTITIS [None]
